FAERS Safety Report 10082359 (Version 2)
Quarter: 2014Q2

REPORT INFORMATION
  Report Type: Spontaneous
  Country: FR (occurrence: FR)
  Receive Date: 20140416
  Receipt Date: 20140422
  Transmission Date: 20141212
  Serious: Yes (Hospitalization)
  Sender: FDA-Public Use
  Company Number: FR-SA-2014SA041717

PATIENT
  Age: 69 Year
  Sex: Male

DRUGS (12)
  1. ELOXATIN [Suspect]
     Indication: COLORECTAL CANCER METASTATIC
     Route: 042
     Dates: start: 20140213, end: 20140213
  2. ELOXATIN [Suspect]
     Indication: COLORECTAL CANCER METASTATIC
     Route: 042
     Dates: start: 201209, end: 201401
  3. ELOXATIN [Suspect]
     Indication: COLORECTAL CANCER METASTATIC
     Route: 042
     Dates: start: 20140306
  4. AVASTIN [Suspect]
     Indication: COLORECTAL CANCER METASTATIC
     Route: 042
     Dates: start: 201209
  5. AVASTIN [Suspect]
     Indication: COLORECTAL CANCER METASTATIC
     Route: 042
     Dates: start: 20140306
  6. AVASTIN [Suspect]
     Indication: COLORECTAL CANCER METASTATIC
     Route: 042
     Dates: start: 20140213, end: 20140213
  7. SOLUMEDROL [Suspect]
     Indication: PREMEDICATION
     Route: 042
     Dates: start: 20140213, end: 20140213
  8. SOLUMEDROL [Suspect]
     Indication: PREMEDICATION
     Route: 042
     Dates: start: 201401, end: 201401
  9. SOLUMEDROL [Suspect]
     Indication: PREMEDICATION
     Route: 042
     Dates: start: 20140306
  10. KYTRIL [Concomitant]
     Dates: start: 201401, end: 201402
  11. ELVORINE [Concomitant]
     Indication: PREMEDICATION
     Route: 042
     Dates: start: 20140213, end: 20140213
  12. FLUOROURACILE [Concomitant]
     Indication: COLORECTAL CANCER METASTATIC
     Dosage: DOSE; 4600 MG PLANNED, DISCONTINUED DURING THE INFUSION, 18 CYCLE
     Route: 042
     Dates: start: 20140213, end: 20140213

REACTIONS (5)
  - Thrombocytopenic purpura [Recovered/Resolved]
  - Thrombocytopenia [Recovered/Resolved]
  - Epistaxis [Recovered/Resolved]
  - Chills [Recovered/Resolved]
  - Pyrexia [Recovered/Resolved]
